FAERS Safety Report 8859337 (Version 1)
Quarter: 2012Q4

REPORT INFORMATION
  Report Type: 
  Country: US (occurrence: US)
  Receive Date: 20121024
  Receipt Date: 20121024
  Transmission Date: 20130627
  Serious: No
  Sender: FDA-Public Use
  Company Number: US-ASTRAZENECA-2012SE14047

PATIENT
  Sex: Female
  Weight: 56.7 kg

DRUGS (2)
  1. METOPROLOL SUCCINATE [Suspect]
     Indication: HYPERTENSION
     Route: 048
     Dates: start: 1999
  2. LEVOXYL [Concomitant]

REACTIONS (6)
  - Trichorrhexis [Unknown]
  - Dry skin [Unknown]
  - Throat tightness [Unknown]
  - Intervertebral disc degeneration [Unknown]
  - Alopecia [Unknown]
  - Skin atrophy [Unknown]
